FAERS Safety Report 4669503-9 (Version None)
Quarter: 2005Q2

REPORT INFORMATION
  Report Type: 
  Country: None (occurrence: None)
  Receive Date: 20050523
  Receipt Date: 20050321
  Transmission Date: 20051028
  Serious: Yes (Hospitalization)
  Sender: FDA-Public Use
  Company Number: AR-ROCHE-399453

PATIENT
  Age: 64 Year
  Sex: Female

DRUGS (5)
  1. CAPECITABINE [Suspect]
     Indication: BREAST CANCER
     Dosage: INTERMITTENT THERAPY.
     Route: 048
     Dates: start: 20050119, end: 20050128
  2. IXABEPILONE [Suspect]
     Indication: BREAST CANCER
     Route: 042
     Dates: start: 20050119
  3. MORPHINE [Concomitant]
     Dates: start: 20041115
  4. NPH ILETIN I (BEEF-PORK) [Concomitant]
     Dates: start: 20040815
  5. IBUPROFEN [Concomitant]
     Dates: start: 20040815

REACTIONS (5)
  - DIARRHOEA [None]
  - FEBRILE NEUTROPENIA [None]
  - GASTRITIS EROSIVE [None]
  - NEUTROPENIA [None]
  - OLIGURIA [None]
